FAERS Safety Report 4556760-2 (Version None)
Quarter: 2005Q1

REPORT INFORMATION
  Report Type: 
  Country: None (occurrence: None)
  Receive Date: 20050114
  Receipt Date: 20050104
  Transmission Date: 20050727
  Serious: Yes (Other)
  Sender: FDA-Public Use
  Company Number: 2005007287

PATIENT
  Age: 2 Year
  Sex: Male
  Weight: 13.6079 kg

DRUGS (1)
  1. CLEOCIN PEDIATRIC FLAVORED (CLINDAMYCIN PALMITATE HYDROCHLORIDE) [Suspect]
     Indication: STAPHYLOCOCCAL INFECTION
     Dosage: 396 MG (132 MG, 3 TIMES DAILY), ORAL
     Route: 048
     Dates: start: 20041231

REACTIONS (1)
  - BLOOD GLUCOSE INCREASED [None]
